FAERS Safety Report 6730344-X (Version None)
Quarter: 2010Q2

REPORT INFORMATION
  Report Type: 
  Country: None (occurrence: None)
  Receive Date: 20100518
  Receipt Date: 20100507
  Transmission Date: 20101027
  Serious: Yes (Other)
  Sender: FDA-Public Use
  Company Number: A0783339A

PATIENT

DRUGS (2)
  1. AVANDIA [Suspect]
     Indication: DIABETES MELLITUS
     Dosage: 2U TWICE PER DAY
     Route: 048
     Dates: start: 19990101, end: 20000101
  2. AVANDAMET [Suspect]
     Indication: DIABETES MELLITUS
     Dosage: 2U TWICE PER DAY
     Dates: start: 20070101, end: 20070101

REACTIONS (2)
  - CHEST PAIN [None]
  - MYOCARDIAL INFARCTION [None]
